FAERS Safety Report 9303580 (Version 3)
Quarter: 2013Q4

REPORT INFORMATION
  Report Type: Spontaneous
  Country: HR (occurrence: HR)
  Receive Date: 20130522
  Receipt Date: 20131010
  Transmission Date: 20140711
  Serious: Yes (Hospitalization, Other)
  Sender: FDA-Public Use
  Company Number: HR-ELI_LILLY_AND_COMPANY-HR201305003369

PATIENT
  Sex: Male

DRUGS (4)
  1. ZYPADHERA [Suspect]
     Indication: SCHIZOPHRENIA
     Dosage: 300 MG, 2/M
     Route: 030
     Dates: start: 20121211
  2. ZYPREXA VELOTAB [Concomitant]
     Dosage: UNK, UNKNOWN
     Route: 048
     Dates: start: 20121205, end: 20130418
  3. XANAX [Concomitant]
     Indication: SCHIZOPHRENIA
     Dosage: 2 DF, UNK
     Dates: start: 20130419
  4. MODITEN [Concomitant]
     Indication: SCHIZOPHRENIA
     Dosage: 4 DF, UNK
     Dates: start: 20130419

REACTIONS (10)
  - Vomiting [Recovered/Resolved]
  - Akathisia [Recovered/Resolved]
  - Asthenia [Recovered/Resolved]
  - Somnolence [Recovered/Resolved]
  - Blood pressure immeasurable [Recovered/Resolved]
  - Disorientation [Recovered/Resolved]
  - Anxiety [Recovered/Resolved]
  - Dysarthria [Recovered/Resolved]
  - Delusional disorder, unspecified type [Recovered/Resolved]
  - Overdose [Recovered/Resolved]
